FAERS Safety Report 25106740 (Version 1)
Quarter: 2025Q1

REPORT INFORMATION
  Report Type: Spontaneous
  Country: US (occurrence: None)
  Receive Date: 20250319
  Receipt Date: 20250319
  Transmission Date: 20250408
  Serious: Yes (Hospitalization)
  Sender: FDA-CTU
  Company Number: None

PATIENT
  Age: 6 Year
  Sex: Female

DRUGS (1)
  1. ENDARI [Suspect]
     Active Substance: GLUTAMINE
     Indication: Sickle cell disease
     Dosage: FREQUENCY : TWICE A DAY;?
     Route: 048
     Dates: start: 20241025

REACTIONS (1)
  - Pain [None]

NARRATIVE: CASE EVENT DATE: 20250305
